FAERS Safety Report 4955292-7 (Version None)
Quarter: 2006Q1

REPORT INFORMATION
  Report Type: 
  Country: None (occurrence: None)
  Receive Date: 20060328
  Receipt Date: 20060317
  Transmission Date: 20060701
  Serious: Yes (Hospitalization)
  Sender: FDA-Public Use
  Company Number: FR-AMGEN-UK173491

PATIENT
  Age: 60 Year
  Sex: Female
  Weight: 46 kg

DRUGS (15)
  1. KEPIVANCE [Suspect]
     Indication: MUCOSAL INFLAMMATION
     Route: 042
     Dates: start: 20060117, end: 20060124
  2. RIVOTRIL [Concomitant]
     Route: 065
  3. IMOVANE [Concomitant]
     Route: 065
  4. MOPRAL [Concomitant]
     Route: 065
  5. CELIPROLOL [Concomitant]
     Route: 065
  6. IDARAC [Concomitant]
     Route: 065
     Dates: start: 20060116
  7. GELOX [Concomitant]
     Route: 065
     Dates: start: 20060116
  8. FUNGIZONE [Concomitant]
     Route: 065
     Dates: start: 20060116
  9. HEPARIN [Concomitant]
     Route: 065
     Dates: start: 20060116
  10. VANCOMYCIN [Concomitant]
     Route: 065
     Dates: start: 20060116
  11. RANIPLEX [Concomitant]
     Route: 065
     Dates: start: 20060116
  12. ZOVIRAX [Concomitant]
     Route: 065
     Dates: start: 20060116
  13. VFEND [Concomitant]
     Route: 065
     Dates: start: 20060116
  14. ACUPAN [Concomitant]
     Route: 065
     Dates: start: 20060116
  15. MELPHALAN [Concomitant]
     Route: 065
     Dates: start: 20060101

REACTIONS (13)
  - DYSGEUSIA [None]
  - ERYTHEMA [None]
  - GLOSSITIS [None]
  - ODYNOPHAGIA [None]
  - OEDEMA [None]
  - ORAL MUCOSAL DISCOLOURATION [None]
  - ORAL PAIN [None]
  - PRURITUS [None]
  - SKIN DISCOLOURATION [None]
  - STOMATITIS [None]
  - TONGUE DISCOLOURATION [None]
  - TONGUE DISORDER [None]
  - TONGUE OEDEMA [None]
